FAERS Safety Report 20165213 (Version 1)
Quarter: 2021Q4

REPORT INFORMATION
  Report Type: Spontaneous
  Country: US (occurrence: US)
  Receive Date: 20211209
  Receipt Date: 20211209
  Transmission Date: 20220303
  Serious: No
  Sender: FDA-Public Use
  Company Number: US-PFIZER INC-202101676274

PATIENT
  Sex: Female

DRUGS (1)
  1. PREMARIN [Suspect]
     Active Substance: ESTROGENS, CONJUGATED
     Indication: Urethral disorder
     Dosage: SIZE OF AN ENGLISH PEA
     Route: 067

REACTIONS (3)
  - Cystitis interstitial [Unknown]
  - Off label use [Unknown]
  - Drug effective for unapproved indication [Unknown]
